FAERS Safety Report 25345051 (Version 2)
Quarter: 2025Q2

REPORT INFORMATION
  Report Type: Spontaneous
  Country: US (occurrence: US)
  Receive Date: 20250522
  Receipt Date: 20250524
  Transmission Date: 20250717
  Serious: No
  Sender: ROCHE
  Company Number: US-ROCHE-10000290143

PATIENT
  Sex: Male

DRUGS (2)
  1. VABYSMO [Suspect]
     Active Substance: FARICIMAB-SVOA
     Indication: Neovascular age-related macular degeneration
     Route: 050
  2. VABYSMO [Suspect]
     Active Substance: FARICIMAB-SVOA
     Route: 050

REACTIONS (1)
  - Uveitis [Recovered/Resolved]
